FAERS Safety Report 9399090 (Version 1)
Quarter: 2013Q3

REPORT INFORMATION
  Report Type: Report from Study
  Country: BE (occurrence: BE)
  Receive Date: 20130715
  Receipt Date: 20130715
  Transmission Date: 20140515
  Serious: Yes (Hospitalization)
  Sender: FDA-Public Use
  Company Number: BE-ROCHE-1245544

PATIENT
  Sex: Female

DRUGS (2)
  1. AVASTIN [Suspect]
     Indication: OVARIAN CANCER
     Route: 042
     Dates: start: 20130117, end: 20130613
  2. LASIX [Concomitant]
     Indication: HYPERTENSION
     Route: 048

REACTIONS (2)
  - Cardiac failure [Unknown]
  - Cardiac valve disease [Unknown]
